FAERS Safety Report 22141350 (Version 1)
Quarter: 2023Q1

REPORT INFORMATION
  Report Type: Report from Study
  Country: CA (occurrence: None)
  Receive Date: 20230327
  Receipt Date: 20230327
  Transmission Date: 20230418
  Serious: Yes (Other)
  Sender: FDA-Public Use
  Company Number: CA-PFIZER INC-202300124778

PATIENT
  Age: 31 Year
  Sex: Female

DRUGS (7)
  1. METHOTREXATE [Suspect]
     Active Substance: METHOTREXATE
     Indication: Product used for unknown indication
     Route: 048
  2. METHOTREXATE [Suspect]
     Active Substance: METHOTREXATE
     Route: 058
  3. HUMIRA [Concomitant]
     Active Substance: ADALIMUMAB
     Route: 058
  4. PLAQUENIL HYDROXYCHLOROQUINE [Concomitant]
     Route: 048
  5. PREDNISONE [Concomitant]
     Active Substance: PREDNISONE
     Route: 048
  6. SIMPONI [Concomitant]
     Active Substance: GOLIMUMAB
     Indication: Seronegative arthritis
     Route: 058
  7. SULFASALAZINE [Concomitant]
     Active Substance: SULFASALAZINE
     Route: 048

REACTIONS (6)
  - Drug ineffective [Unknown]
  - C-reactive protein increased [Unknown]
  - Hypothyroidism [Unknown]
  - Pain [Unknown]
  - Psoriasis [Unknown]
  - Psoriatic arthropathy [Unknown]
